FAERS Safety Report 12492882 (Version 1)
Quarter: 2016Q2

REPORT INFORMATION
  Report Type: Spontaneous
  Country: NL (occurrence: NL)
  Receive Date: 20160623
  Receipt Date: 20160623
  Transmission Date: 20160815
  Serious: Yes (Other)
  Sender: FDA-Public Use
  Company Number: NL-NOVAST LABORATORIES, LTD-NL-2016NOV000022

PATIENT
  Age: 71 Year
  Sex: Female

DRUGS (2)
  1. NORETHINDRONE\ETHINYL ESTRADIOL [Suspect]
     Active Substance: ETHINYL ESTRADIOL\NORETHINDRONE
     Indication: HEPATITIS A
     Dosage: UNK
  2. TOLTERODINE [Concomitant]
     Active Substance: TOLTERODINE
     Indication: HEPATITIS A
     Dosage: UNK

REACTIONS (10)
  - Staphylococcal infection [Unknown]
  - Scar [Recovered/Resolved]
  - Milia [Recovered/Resolved]
  - Rash erythematous [Recovered/Resolved]
  - Porphyria non-acute [Recovered/Resolved]
  - Serum ferritin increased [Recovered/Resolved]
  - Scab [Recovered/Resolved]
  - Skin hyperpigmentation [Recovered/Resolved]
  - Blister [Recovered/Resolved]
  - Liver function test increased [Recovered/Resolved]
